FAERS Safety Report 17600029 (Version 4)
Quarter: 2021Q4

REPORT INFORMATION
  Report Type: Spontaneous
  Country: US (occurrence: US)
  Receive Date: 20200330
  Receipt Date: 20211111
  Transmission Date: 20220303
  Serious: Yes (Death)
  Sender: FDA-Public Use
  Company Number: US-PFIZER INC-2020128210

PATIENT
  Age: 23 Year
  Sex: Male

DRUGS (6)
  1. DOXORUBICIN [Suspect]
     Active Substance: DOXORUBICIN
     Indication: Kaposi^s sarcoma
     Dosage: UNK
  2. DOXORUBICIN [Suspect]
     Active Substance: DOXORUBICIN
     Indication: Cytokine release syndrome
     Dosage: UNK, DOSED AT A 75% DOSE REDUCTION
  3. DOXORUBICIN [Suspect]
     Active Substance: DOXORUBICIN
     Dosage: UNK, AT 50% DOSE REDUCTION
  4. RITUXIMAB [Suspect]
     Active Substance: RITUXIMAB
     Indication: Kaposi^s sarcoma
     Dosage: UNK, MONOTHERAPY
  5. RITUXIMAB [Suspect]
     Active Substance: RITUXIMAB
     Indication: Cytokine release syndrome
  6. GANCICLOVIR [Concomitant]
     Active Substance: GANCICLOVIR
     Indication: Epstein-Barr virus infection
     Dosage: UNK

REACTIONS (1)
  - Drug ineffective [Fatal]
